FAERS Safety Report 7012601-5 (Version None)
Quarter: 2010Q3

REPORT INFORMATION
  Report Type: 
  Country: None (occurrence: None)
  Receive Date: 20100923
  Receipt Date: 20100923
  Transmission Date: 20110219
  Serious: Yes (Hospitalization)
  Sender: FDA-Public Use
  Company Number: None

PATIENT
  Sex: Female
  Weight: 64.8644 kg

DRUGS (1)
  1. ADOXA 150 MG [Suspect]
     Indication: ACNE
     Dosage: 1 PER DAY
     Dates: start: 20100814, end: 20100822

REACTIONS (1)
  - GASTROOESOPHAGEAL REFLUX DISEASE [None]
